FAERS Safety Report 7265370-8 (Version None)
Quarter: 2011Q1

REPORT INFORMATION
  Report Type: 
  Country: None (occurrence: None)
  Receive Date: 20110131
  Receipt Date: 20110121
  Transmission Date: 20110831
  Serious: Yes (Other)
  Sender: FDA-Public Use
  Company Number: US-SANOFI-AVENTIS-2010SA065094

PATIENT
  Age: 67 Year
  Sex: Female

DRUGS (2)
  1. OPTICLICK [Suspect]
     Indication: TYPE 2 DIABETES MELLITUS
  2. LANTUS [Suspect]
     Indication: TYPE 2 DIABETES MELLITUS
     Dosage: DOSE:32 UNIT(S)
     Route: 058

REACTIONS (12)
  - ABDOMINAL PAIN UPPER [None]
  - MALIGNANT TUMOUR EXCISION [None]
  - HAEMATOCHEZIA [None]
  - MYALGIA [None]
  - VISUAL IMPAIRMENT [None]
  - CATARACT [None]
  - MYOCARDIAL INFARCTION [None]
  - GLAUCOMA [None]
  - STRESS [None]
  - BLOOD GLUCOSE INCREASED [None]
  - POOR PERIPHERAL CIRCULATION [None]
  - PAIN IN EXTREMITY [None]
